FAERS Safety Report 8404607-6 (Version None)
Quarter: 2012Q2

REPORT INFORMATION
  Report Type: 
  Country: None (occurrence: None)
  Receive Date: 20120601
  Receipt Date: 20120523
  Transmission Date: 20120825
  Serious: Yes (Hospitalization)
  Sender: FDA-Public Use
  Company Number: FR-BAXTER-2012BAX006720

PATIENT
  Sex: Male

DRUGS (5)
  1. NUTRINEAL PD4 A 1,1 POUR CENT D'ACIDES AMINES, SOLUTION [Suspect]
     Indication: DECREASED APPETITE
  2. EXTRANEAL [Suspect]
     Route: 033
  3. NUTRINEAL PD4 A 1,1 POUR CENT D'ACIDES AMINES, SOLUTION [Suspect]
     Indication: FOOD AVERSION
  4. PHYSIONEAL 40 GLUCOSE 1,36%, SOLUTION POUR DIALYSE PERITONEALE [Suspect]
     Dosage: 3 BAGS DAILY
     Route: 033
  5. NUTRINEAL PD4 A 1,1 POUR CENT D'ACIDES AMINES, SOLUTION [Suspect]
     Indication: MALNUTRITION
     Dosage: ONE BAG
     Route: 033

REACTIONS (6)
  - MALNUTRITION [None]
  - NAUSEA [None]
  - FOOD AVERSION [None]
  - VOMITING [None]
  - CONDITION AGGRAVATED [None]
  - DECREASED APPETITE [None]
